FAERS Safety Report 10966569 (Version 1)
Quarter: 2015Q1

REPORT INFORMATION
  Report Type: Spontaneous
  Country: None (occurrence: None)
  Receive Date: 20150226
  Receipt Date: 20150226
  Transmission Date: 20150721
  Serious: No
  Sender: FDA-Public Use
  Company Number: TPA2009A02343

PATIENT
  Age: 81 Year
  Sex: Male
  Weight: 102.06 kg

DRUGS (7)
  1. DIOVAN [Concomitant]
     Active Substance: VALSARTAN
  2. VESICARE [Concomitant]
     Active Substance: SOLIFENACIN SUCCINATE
  3. LIPITOR [Concomitant]
     Active Substance: ATORVASTATIN CALCIUM
  4. CENTRUM SILVER [Concomitant]
     Active Substance: VITAMINS
  5. ULORIC [Suspect]
     Active Substance: FEBUXOSTAT
     Indication: BLOOD URIC ACID INCREASED
     Dosage: 1 IN 1D
     Route: 048
     Dates: start: 200908
  6. LYRICA [Concomitant]
     Active Substance: PREGABALIN
  7. SENNA [Concomitant]
     Active Substance: SENNA LEAF\SENNOSIDES\SENNOSIDES A AND B

REACTIONS (4)
  - Muscular weakness [None]
  - Muscle spasms [None]
  - Nervousness [None]
  - Fall [None]

NARRATIVE: CASE EVENT DATE: 200908
